FAERS Safety Report 7885001-3 (Version None)
Quarter: 2011Q4

REPORT INFORMATION
  Report Type: 
  Country: None (occurrence: None)
  Receive Date: 20111102
  Receipt Date: 20111027
  Transmission Date: 20120403
  Serious: Yes (Other)
  Sender: FDA-Public Use
  Company Number: US-PFIZER INC-2011263926

PATIENT
  Sex: Female

DRUGS (2)
  1. ZOCOR [Suspect]
     Dosage: UNK
  2. LIPITOR [Suspect]
     Dosage: UNK

REACTIONS (2)
  - MUSCLE DISORDER [None]
  - STENT PLACEMENT [None]
